FAERS Safety Report 9220015 (Version 2)
Quarter: 2013Q2

REPORT INFORMATION
  Report Type: Report from Study
  Country: US (occurrence: US)
  Receive Date: 20130409
  Receipt Date: 20130506
  Transmission Date: 20140414
  Serious: Yes (Death, Other)
  Sender: FDA-Public Use
  Company Number: US-ROCHE-1209752

PATIENT
  Sex: 0

DRUGS (2)
  1. ALTEPLASE [Suspect]
     Indication: ISCHAEMIC STROKE
     Route: 040
  2. SULFUR HEXAFLUORIDE [Suspect]
     Indication: ISCHAEMIC STROKE
     Dosage: THREE BOLUS OF 45 MCG/ML
     Route: 065

REACTIONS (2)
  - Death [Fatal]
  - Haemorrhage intracranial [Unknown]
